FAERS Safety Report 16881773 (Version 2)
Quarter: 2020Q1

REPORT INFORMATION
  Report Type: Spontaneous
  Country: US (occurrence: US)
  Receive Date: 20191003
  Receipt Date: 20200211
  Transmission Date: 20200409
  Serious: Yes (Hospitalization, Other)
  Sender: FDA-Public Use
  Company Number: US-ASTRAZENECA-2019SF37642

PATIENT
  Age: 61 Year
  Sex: Male
  Weight: 68 kg

DRUGS (62)
  1. PENTASA [Concomitant]
     Active Substance: MESALAMINE
     Indication: COLITIS
     Dates: start: 201206
  2. FUROSEMIDE. [Concomitant]
     Active Substance: FUROSEMIDE
     Indication: FLUID RETENTION
     Dates: start: 201806
  3. LOSARTAN. [Concomitant]
     Active Substance: LOSARTAN
     Indication: HYPERTENSION
     Dates: start: 201610, end: 2019
  4. PREDNISONE. [Concomitant]
     Active Substance: PREDNISONE
     Indication: COLITIS
     Dates: start: 2012
  5. MOVIPREP [Concomitant]
     Active Substance: ASCORBIC ACID\POLYETHYLENE GLYCOL 3350\POTASSIUM CHLORIDE\SODIUM ASCORBATE\SODIUM CHLORIDE\SODIUM SULFATE
  6. NYSTATIN. [Concomitant]
     Active Substance: NYSTATIN
  7. SULFAMETHOXAZOLE [Concomitant]
     Active Substance: SULFAMETHOXAZOLE
  8. TRAMADOL. [Concomitant]
     Active Substance: TRAMADOL
  9. ZALEPLON. [Concomitant]
     Active Substance: ZALEPLON
  10. ASTELIN [Concomitant]
     Active Substance: AZELASTINE HYDROCHLORIDE
  11. ZESTRIL [Concomitant]
     Active Substance: LISINOPRIL
     Indication: HYPERTENSION
     Dates: start: 200207
  12. CIPROFLOXACIN. [Concomitant]
     Active Substance: CIPROFLOXACIN
     Dates: start: 201411
  13. HYDROCHLOROTHIAZIDE. [Concomitant]
     Active Substance: HYDROCHLOROTHIAZIDE
     Indication: FLUID RETENTION
     Dates: start: 2014, end: 2016
  14. CEFDINIR. [Concomitant]
     Active Substance: CEFDINIR
  15. MYCOPHENOLATE SODIUM [Concomitant]
     Active Substance: MYCOPHENOLATE SODIUM
  16. BIAXIN [Concomitant]
     Active Substance: CLARITHROMYCIN
  17. SUCRALFATE. [Concomitant]
     Active Substance: SUCRALFATE
  18. TOUJEO [Concomitant]
     Active Substance: INSULIN GLARGINE
  19. NEXIUM [Suspect]
     Active Substance: ESOMEPRAZOLE MAGNESIUM
     Indication: GASTROOESOPHAGEAL REFLUX DISEASE
     Route: 048
     Dates: start: 200508, end: 200512
  20. PEPCID [Concomitant]
     Active Substance: FAMOTIDINE
     Dates: start: 20191008
  21. NIFEDIPIN [Concomitant]
     Active Substance: NIFEDIPINE
     Indication: HYPERTENSION
     Dates: start: 2016, end: 2019
  22. ROPINIROLE. [Concomitant]
     Active Substance: ROPINIROLE
     Indication: RESTLESS LEGS SYNDROME
     Dates: start: 201802, end: 2019
  23. PEG [Concomitant]
     Active Substance: POLYETHYLENE GLYCOLS
  24. GLUCAGON. [Concomitant]
     Active Substance: GLUCAGON
  25. AFLURIA NOS [Concomitant]
     Active Substance: INFLUENZA VIRUS VACCINE TRIVALENT TYPE A+B AFLURIA
  26. ACTIGALL [Concomitant]
     Active Substance: URSODIOL
  27. NEXIUM [Suspect]
     Active Substance: ESOMEPRAZOLE MAGNESIUM
     Indication: GASTROOESOPHAGEAL REFLUX DISEASE
     Route: 048
     Dates: start: 20051215
  28. HYDRALAZINE [Concomitant]
     Active Substance: HYDRALAZINE HYDROCHLORIDE
     Indication: HYPERTENSION
     Dates: start: 201811, end: 2019
  29. LOPERAMIDE [Concomitant]
     Active Substance: LOPERAMIDE
  30. CELLCEPT [Concomitant]
     Active Substance: MYCOPHENOLATE MOFETIL\MYCOPHENOLATE MOFETIL HYDROCHLORIDE
  31. METHYLPREDNISOLONE. [Concomitant]
     Active Substance: METHYLPREDNISOLONE
  32. VITAMIN D2 [Concomitant]
     Active Substance: ERGOCALCIFEROL
     Indication: VITAMIN D DEFICIENCY
     Dates: start: 201408
  33. ZITHROMAX [Concomitant]
     Active Substance: AZITHROMYCIN DIHYDRATE
     Dates: start: 200311
  34. TACROLIMUS. [Concomitant]
     Active Substance: TACROLIMUS
     Indication: IMMUNOSUPPRESSION
     Dates: start: 2010
  35. FUROSEMIDE. [Concomitant]
     Active Substance: FUROSEMIDE
     Indication: FLUID RETENTION
     Dates: start: 201406, end: 201606
  36. CALCITRIOL. [Concomitant]
     Active Substance: CALCITRIOL
  37. OSELTAMIVIR [Concomitant]
     Active Substance: OSELTAMIVIR
  38. ACETAMINOPHEN. [Concomitant]
     Active Substance: ACETAMINOPHEN
  39. PROCHLORPERAZINE. [Concomitant]
     Active Substance: PROCHLORPERAZINE
  40. PRILOSEC [Suspect]
     Active Substance: OMEPRAZOLE MAGNESIUM
     Route: 048
     Dates: start: 1998, end: 2017
  41. DOXYCYCLINE. [Concomitant]
     Active Substance: DOXYCYCLINE
     Dates: start: 200508
  42. LEVOFLOXACIN. [Concomitant]
     Active Substance: LEVOFLOXACIN
     Dates: start: 201701
  43. LEVOFLOXACIN. [Concomitant]
     Active Substance: LEVOFLOXACIN
     Dates: start: 201811
  44. CIPROFLOXACIN. [Concomitant]
     Active Substance: CIPROFLOXACIN
     Dates: start: 201704
  45. METRONIDAZOLE. [Concomitant]
     Active Substance: METRONIDAZOLE
     Indication: INSOMNIA
     Dates: start: 201704
  46. NOVOLOG [Concomitant]
     Active Substance: INSULIN ASPART
  47. HAVRIX [Concomitant]
     Active Substance: HEPATITIS A VIRUS STRAIN HM175 ANTIGEN (FORMALDEHYDE INACTIVATED)
  48. DEXTROSE. [Concomitant]
     Active Substance: DEXTROSE
  49. NORVASC [Concomitant]
     Active Substance: AMLODIPINE BESYLATE
  50. CYCLOBENZAPRINE. [Concomitant]
     Active Substance: CYCLOBENZAPRINE
     Indication: PAIN
     Dates: start: 201904
  51. ZOLPIDEM TARTRATE. [Concomitant]
     Active Substance: ZOLPIDEM TARTRATE
     Indication: INSOMNIA
     Dates: start: 201904
  52. ACYCLOVIR. [Concomitant]
     Active Substance: ACYCLOVIR
  53. NEXIUM [Suspect]
     Active Substance: ESOMEPRAZOLE MAGNESIUM
     Indication: GASTROOESOPHAGEAL REFLUX DISEASE
     Route: 048
     Dates: start: 1998, end: 2017
  54. NEXIUM [Suspect]
     Active Substance: ESOMEPRAZOLE MAGNESIUM
     Indication: GASTROOESOPHAGEAL REFLUX DISEASE
     Route: 048
     Dates: start: 20050811
  55. CARVEDILOL. [Concomitant]
     Active Substance: CARVEDILOL
     Indication: HYPERTENSION
     Dates: start: 2014
  56. METRONIDAZOLE. [Concomitant]
     Active Substance: METRONIDAZOLE
     Indication: INSOMNIA
     Dates: start: 200609
  57. BENZONATATE. [Concomitant]
     Active Substance: BENZONATATE
  58. IMIQUIMOD. [Concomitant]
     Active Substance: IMIQUIMOD
  59. WARFARIN [Concomitant]
     Active Substance: WARFARIN
  60. ELIQUIS [Concomitant]
     Active Substance: APIXABAN
  61. PHOSLO [Concomitant]
     Active Substance: CALCIUM ACETATE
  62. FOSRENOL [Concomitant]
     Active Substance: LANTHANUM CARBONATE

REACTIONS (8)
  - Nephrogenic anaemia [Unknown]
  - Acute kidney injury [Not Recovered/Not Resolved]
  - Chronic kidney disease-mineral and bone disorder [Unknown]
  - Chronic kidney disease [Not Recovered/Not Resolved]
  - Renal failure [Unknown]
  - Renal injury [Unknown]
  - Hyperparathyroidism secondary [Unknown]
  - End stage renal disease [Not Recovered/Not Resolved]

NARRATIVE: CASE EVENT DATE: 2014
